FAERS Safety Report 4497735-1 (Version None)
Quarter: 2004Q4

REPORT INFORMATION
  Report Type: 
  Country: None (occurrence: None)
  Receive Date: 20041104
  Receipt Date: 20041027
  Transmission Date: 20050328
  Serious: Yes (Death, Life-Threatening)
  Sender: FDA-Public Use
  Company Number: 2004IM000867

PATIENT
  Age: 54 Year
  Sex: Female

DRUGS (14)
  1. ADVAFERON (A643_INTERFERON ALFACON-1) [Suspect]
     Indication: HEPATITIS FULMINANT
     Dosage: 18 MU;QD;SUBCUTANEOUS
     Route: 058
     Dates: start: 20031223, end: 20031231
  2. FLUDARABINE [Concomitant]
  3. MELPHALAN [Concomitant]
  4. CYCLOSPORINE [Concomitant]
  5. METHOTREXATE [Concomitant]
  6. LENOGRASTIM [Concomitant]
  7. CEFEPIME HYDROCHLORIDE [Concomitant]
  8. STRONG NEO-MINOPHAGEN C [Concomitant]
  9. PREDNISOLONE [Concomitant]
  10. METHYLPREDNISOLONE SODIUM SUCCINATE [Concomitant]
  11. URSODEOXYCHOLIC ACID [Concomitant]
  12. AMPHOTERICIN B [Concomitant]
  13. FAMOTIDINE [Concomitant]
  14. MARZULENE [Concomitant]

REACTIONS (4)
  - DISEASE PROGRESSION [None]
  - METABOLIC ACIDOSIS [None]
  - PANCYTOPENIA [None]
  - SEPSIS [None]
